FAERS Safety Report 5087501-0 (Version None)
Quarter: 2006Q3

REPORT INFORMATION
  Report Type: 
  Country: None (occurrence: None)
  Receive Date: 20060821
  Receipt Date: 20060814
  Transmission Date: 20061208
  Serious: Yes (Other)
  Sender: FDA-Public Use
  Company Number: 2006098284

PATIENT
  Age: 82 Year
  Sex: Male
  Weight: 68.9467 kg

DRUGS (1)
  1. LIPITOR [Suspect]
     Indication: BLOOD CHOLESTEROL INCREASED
     Dosage: 20 MG (20 MG, 1 IN 1 D)

REACTIONS (4)
  - OEDEMA PERIPHERAL [None]
  - RAYNAUD'S PHENOMENON [None]
  - SCLERODERMA [None]
  - SKIN TIGHTNESS [None]
